FAERS Safety Report 5633404-X (Version None)
Quarter: 2008Q1

REPORT INFORMATION
  Report Type: 
  Country: None (occurrence: None)
  Receive Date: 20080221
  Receipt Date: 20080207
  Transmission Date: 20080703
  Serious: Yes (Other)
  Sender: FDA-Public Use
  Company Number: PL-RANBAXY-2008RR-12987

PATIENT

DRUGS (1)
  1. CEROXIM [Suspect]
     Indication: BRONCHITIS
     Dosage: 500 MG, BID
     Route: 048

REACTIONS (2)
  - FALL [None]
  - LOSS OF CONSCIOUSNESS [None]
